FAERS Safety Report 9257124 (Version 1)
Quarter: 2013Q1

REPORT INFORMATION
  Report Type: Spontaneous
  Country: US (occurrence: None)
  Receive Date: 20121212
  Receipt Date: 20121212
  Transmission Date: 20140127
  Serious: No
  Sender: FDA-Public Use
  Company Number: 1209USA012023

PATIENT
  Age: 66 Year
  Sex: Male

DRUGS (3)
  1. PEGINTRON [Suspect]
     Indication: HEPATITIS C
     Dates: start: 20120913
  2. RIBAVIRIN [Suspect]
     Indication: HEPATITIS C
     Dates: start: 20120913
  3. VICTRELIS [Suspect]
     Indication: HEPATITIS C
     Dates: start: 20121012

REACTIONS (15)
  - Anaemia [None]
  - Abasia [None]
  - Feeling abnormal [None]
  - Gastroenteritis viral [None]
  - Sleep disorder due to general medical condition, insomnia type [None]
  - Psychomotor hyperactivity [None]
  - Dry mouth [None]
  - Vomiting [None]
  - Insomnia [None]
  - Diarrhoea [None]
  - Pyrexia [None]
  - Malaise [None]
  - Abdominal discomfort [None]
  - Adverse event [None]
  - Thirst [None]
